FAERS Safety Report 5694406-0 (Version None)
Quarter: 2008Q2

REPORT INFORMATION
  Report Type: 
  Country: None (occurrence: None)
  Receive Date: 20080403
  Receipt Date: 20080403
  Transmission Date: 20081010
  Serious: Yes (Hospitalization)
  Sender: FDA-Public Use
  Company Number: None

PATIENT
  Sex: Female
  Weight: 50.9 kg

DRUGS (2)
  1. CISPLATIN [Suspect]
     Dosage: 44 MG
  2. ERBITUX [Suspect]
     Dosage: 370 MG

REACTIONS (10)
  - BACTERIA URINE IDENTIFIED [None]
  - DIARRHOEA [None]
  - ESCHERICHIA INFECTION [None]
  - HAEMATOCRIT DECREASED [None]
  - HAEMOGLOBIN DECREASED [None]
  - HOT FLUSH [None]
  - NAUSEA [None]
  - NEUTROPHIL COUNT DECREASED [None]
  - VOMITING [None]
  - WHITE BLOOD CELL COUNT DECREASED [None]
